FAERS Safety Report 8784693 (Version 3)
Quarter: 2012Q4

REPORT INFORMATION
  Report Type: 
  Country: US (occurrence: US)
  Receive Date: 20120914
  Receipt Date: 20121025
  Transmission Date: 20130627
  Serious: Yes (Hospitalization, Other)
  Sender: FDA-Public Use
  Company Number: US-PFIZER INC-2012224088

PATIENT
  Age: 50 Year
  Sex: Female
  Weight: 55.78 kg

DRUGS (4)
  1. ADRIAMYCIN [Suspect]
     Indication: BREAST CANCER STAGE III
     Dosage: for 5 days
     Dates: start: 199805, end: 1998
  2. CISPLATIN [Suspect]
     Indication: BREAST CANCER STAGE III
     Dosage: for 5 days
     Dates: start: 199805, end: 1998
  3. CARBOPLATIN [Suspect]
     Indication: BREAST CANCER STAGE III
     Dosage: for 5 days
     Dates: start: 199805, end: 1998
  4. CYTOXAN [Suspect]
     Indication: BREAST CANCER STAGE III
     Dosage: for 5 days
     Dates: start: 199805, end: 1998

REACTIONS (3)
  - Pancreatitis chronic [Recovered/Resolved]
  - Liver disorder [Not Recovered/Not Resolved]
  - Pseudocyst [None]
